FAERS Safety Report 4969450-9 (Version None)
Quarter: 2006Q2

REPORT INFORMATION
  Report Type: 
  Country: None (occurrence: None)
  Receive Date: 20060406
  Receipt Date: 20060329
  Transmission Date: 20061013
  Serious: Yes (Hospitalization)
  Sender: FDA-Public Use
  Company Number: TPA2005A00887

PATIENT
  Age: 87 Year
  Sex: Male
  Weight: 74.8 kg

DRUGS (13)
  1. PIOGLITAZONE HCL [Suspect]
     Indication: GLUCOSE TOLERANCE IMPAIRED
     Dosage: 1 IN 1 D, PER ORAL
     Route: 048
     Dates: start: 20041120
  2. TRAMADOL HCL (TRAMADOL HYDROCHLORIDE) (50 MILLIGRAM) [Concomitant]
  3. OMEPRAZOLE (OMEPRAZOLE) (20 MILLIGRAM) [Concomitant]
  4. PLAVIX (CLOPIDOGREL SULFATE) (75 MILLIGRAM) [Concomitant]
  5. FUROSEMIDE (FUROSEMIDE) (20 MILLIGRAM) [Concomitant]
  6. METOPROLOL (METOPROLOL) (50 MILLIGRAM) [Concomitant]
  7. POTASSIUM CHLORIDE (POTASSIUM CHLORIDE) (10 MILLIGRAM) [Concomitant]
  8. SIMVASTATIN (SIMVASTATIN) (10 MILLIGRAM) [Concomitant]
  9. ALLOPURINOL (ALLOPURINOL) (100 MILLIGRAM) [Concomitant]
  10. LORATADINE (LORATADINE) (10 MILLIGRAM) [Concomitant]
  11. ASPIRIN (ACETYLSALICYLIC ACID) (325 MILLIGRAM) [Concomitant]
  12. IMODIUM (LOPERAMIDE HYDROCHLORIDE) (2 MILLIGRAM) [Concomitant]
  13. ISOSORBIDE (ISOSORBIDE) (20 MILLIGRAM) [Concomitant]

REACTIONS (8)
  - ANGINA UNSTABLE [None]
  - BLOOD PRESSURE SYSTOLIC INCREASED [None]
  - CHEST DISCOMFORT [None]
  - CORONARY ARTERY RESTENOSIS [None]
  - CORONARY ARTERY STENOSIS [None]
  - ELECTROCARDIOGRAM Q WAVE ABNORMAL [None]
  - ELECTROCARDIOGRAM ST SEGMENT ABNORMAL [None]
  - HAEMOGLOBIN DECREASED [None]
